FAERS Safety Report 15934930 (Version 2)
Quarter: 2019Q1

REPORT INFORMATION
  Report Type: Not Available
  Country: US (occurrence: US)
  Receive Date: 20190207
  Receipt Date: 20190225
  Transmission Date: 20190417
  Serious: Yes (Hospitalization)
  Sender: FDA-Public Use
  Company Number: US-NEUROCRINE BIOSCIENCES INC.-2019NBI00336

PATIENT
  Age: 60 Year
  Sex: Male

DRUGS (1)
  1. INGREZZA [Suspect]
     Active Substance: VALBENAZINE
     Indication: TARDIVE DYSKINESIA
     Route: 048
     Dates: start: 20180312

REACTIONS (3)
  - Fatigue [Unknown]
  - Blood sodium decreased [Unknown]
  - Somnolence [Unknown]

NARRATIVE: CASE EVENT DATE: 201812
